FAERS Safety Report 8280333-1 (Version None)
Quarter: 2012Q2

REPORT INFORMATION
  Report Type: 
  Country: None (occurrence: None)
  Receive Date: 20120412
  Receipt Date: 20110502
  Transmission Date: 20120825
  Serious: No
  Sender: FDA-Public Use
  Company Number: US-ASTRAZENECA-2011SE26294

PATIENT
  Age: 78 Year
  Sex: Female

DRUGS (4)
  1. ZEGERID [Concomitant]
  2. REGLAN [Concomitant]
  3. NEXIUM [Suspect]
     Route: 048
  4. CARAFATE [Concomitant]

REACTIONS (2)
  - GASTROOESOPHAGEAL REFLUX DISEASE [None]
  - ABDOMINAL DISCOMFORT [None]
